FAERS Safety Report 14292658 (Version 1)
Quarter: 2017Q4

REPORT INFORMATION
  Report Type: Spontaneous
  Country: US (occurrence: US)
  Receive Date: 20171215
  Receipt Date: 20171215
  Transmission Date: 20180321
  Serious: Yes (Other)
  Sender: FDA-Public Use
  Company Number: US-BRAEBURN PHARMACEUTICALS, INC.-2017BBN00066

PATIENT
  Age: 28 Year
  Sex: Male
  Weight: 70.75 kg

DRUGS (1)
  1. PROBUPHINE [Suspect]
     Active Substance: BUPRENORPHINE HYDROCHLORIDE
     Indication: DRUG DEPENDENCE
     Dosage: 296.8 MG, ONCE IN THE LEFT ARM
     Dates: start: 20170918, end: 20171117

REACTIONS (9)
  - Pyrexia [Recovered/Resolved]
  - Cellulitis [Recovering/Resolving]
  - Product storage error [Recovered/Resolved]
  - Malaise [Unknown]
  - Withdrawal syndrome [Unknown]
  - Hyperhidrosis [Unknown]
  - Implant site scar [Unknown]
  - Infection [Recovering/Resolving]
  - Abscess [Recovering/Resolving]

NARRATIVE: CASE EVENT DATE: 2017
